FAERS Safety Report 7133709-X (Version None)
Quarter: 2010Q4

REPORT INFORMATION
  Report Type: 
  Country: None (occurrence: None)
  Receive Date: 20101203
  Receipt Date: 20101115
  Transmission Date: 20110411
  Serious: Yes (Other)
  Sender: FDA-Public Use
  Company Number: JP-AMGEN-QUU423116

PATIENT

DRUGS (16)
  1. ENBREL [Suspect]
     Indication: RHEUMATOID ARTHRITIS
     Dosage: LYOPHILIZED 50 MG, QWK
     Route: 058
     Dates: start: 20060714, end: 20070706
  2. ENBREL [Suspect]
     Dosage: LYOPHILIZED 25 MG, QWK
     Route: 058
     Dates: start: 20070713, end: 20080627
  3. ENBREL [Suspect]
     Dosage: 25 MG, QWK
     Route: 058
     Dates: start: 20080704, end: 20100528
  4. ENBREL [Suspect]
     Dosage: 25 MG, 2 TIMES/WK
     Route: 058
     Dates: start: 20100602, end: 20100618
  5. FOSAMAX [Concomitant]
     Dosage: 35 MG, QWK
     Route: 048
     Dates: end: 20100629
  6. NU LOTAN [Concomitant]
     Dosage: 3 MG, QD
     Route: 048
     Dates: end: 20100629
  7. NORVASC [Concomitant]
     Dosage: UNK UNK, QD
     Dates: start: 20050219
  8. DEPAS [Concomitant]
  9. TRAVELMIN                          /00517301/ [Concomitant]
     Indication: VERTIGO
     Dosage: UNK
     Dates: start: 20070626
  10. ISONIAZID [Concomitant]
     Dosage: UNK
     Dates: start: 20040616, end: 20070511
  11. SELBEX [Concomitant]
  12. ACTONEL [Concomitant]
     Dosage: UNK
     Dates: start: 20070130, end: 20070906
  13. PANVITAN                           /00466101/ [Concomitant]
  14. CEPHADOL [Concomitant]
     Dosage: UNK
     Dates: start: 20070625, end: 20071026
  15. VITAMEDIN                          /00176001/ [Concomitant]
     Dosage: UNK
     Dates: start: 20070625, end: 20071026
  16. TAGAMET                            /00397401/ [Concomitant]
     Route: 048

REACTIONS (4)
  - ARTHRALGIA [None]
  - CONDITION AGGRAVATED [None]
  - INTERSTITIAL LUNG DISEASE [None]
  - OEDEMA [None]
